FAERS Safety Report 6332499-8 (Version None)
Quarter: 2009Q3

REPORT INFORMATION
  Report Type: 
  Country: None (occurrence: None)
  Receive Date: 20090828
  Receipt Date: 20081009
  Transmission Date: 20100115
  Serious: No
  Sender: FDA-Public Use
  Company Number: A0749861A

PATIENT
  Age: 52 Year
  Sex: Female

DRUGS (2)
  1. MALARONE [Suspect]
     Indication: MALARIA
     Dosage: 1TAB PER DAY
     Route: 048
     Dates: start: 20080918, end: 20080922
  2. NO CONCURRENT MEDICATION [Concomitant]

REACTIONS (3)
  - ORAL PAIN [None]
  - PAIN [None]
  - STOMATITIS [None]
